FAERS Safety Report 18557048 (Version 1)
Quarter: 2020Q4

REPORT INFORMATION
  Report Type: Spontaneous
  Country: SE (occurrence: SE)
  Receive Date: 20201129
  Receipt Date: 20201129
  Transmission Date: 20210114
  Serious: Yes (Hospitalization)
  Sender: FDA-Public Use
  Company Number: SE-NOVOPROD-768152

PATIENT
  Age: 79 Year
  Sex: Male

DRUGS (16)
  1. CANODERM [Concomitant]
     Active Substance: UREA
     Dosage: 1 QD
     Route: 065
     Dates: start: 20191113
  2. ENALAPRIL [Concomitant]
     Active Substance: ENALAPRIL
     Dosage: 20 MG, QD
     Route: 065
     Dates: start: 20190613
  3. OVIXAN [Concomitant]
     Dosage: UNK ( ACCORDING TO SPECIAL ORDER.8 WEEK SCHEDULE. APPLICATION DAILY FOR 2 WEEKS. THEN EVERY OTHER DA
     Route: 065
     Dates: start: 20200225
  4. OMEPRAZOLE. [Concomitant]
     Active Substance: OMEPRAZOLE
     Dosage: 20 MG, QD
     Route: 065
     Dates: start: 20200223
  5. RETACRIT [EPOETIN ZETA] [Concomitant]
     Active Substance: ERYTHROPOIETIN
     Dosage: UNK
     Route: 058
     Dates: start: 20201014
  6. LOPERAMIDE [Concomitant]
     Active Substance: LOPERAMIDE
     Dosage: UNK (1-2 CAPSULES IF NECESSARY NO MORE THAN 8 CAPSULES PER DAY)
     Route: 065
     Dates: start: 20190613
  7. BETNOVAT [BETAMETHASONE VALERATE] [Concomitant]
     Dosage: UNK (ACCORDING TO SPECIAL PRESCRIPTION: 1 APPLICATION IN THE MORNING AND IN THE EVENING TO IMPROVEME
     Route: 065
     Dates: start: 20190613
  8. OVIDERM [Concomitant]
     Dosage: 2 QD
     Route: 065
     Dates: start: 20200225
  9. VICTOZA [Suspect]
     Active Substance: LIRAGLUTIDE
     Indication: TYPE 2 DIABETES MELLITUS
     Dosage: 1.2 MG, QD
     Route: 058
     Dates: start: 20190522
  10. ABASAGLAR [Concomitant]
     Active Substance: INSULIN GLARGINE
     Dosage: 1 QD (35 E 1X1)
     Route: 058
     Dates: start: 20190613
  11. METFORMIN [Concomitant]
     Active Substance: METFORMIN HYDROCHLORIDE
     Dosage: 1000 MG, QD
     Route: 065
     Dates: start: 20190613
  12. ALFUZOSIN [Concomitant]
     Active Substance: ALFUZOSIN
     Dosage: 10 MG, QD
     Route: 065
     Dates: start: 20190613
  13. HYDROKORTISON [Concomitant]
     Dosage: UNK (ACCORDING TO SPECIAL PRESCRIPTION: 1 APPLICATION IN THE MORNING AND IN THE EVENING TO IMPROVEME
     Route: 065
     Dates: start: 20190710
  14. ACETYLSALICYLIC ACID [Concomitant]
     Active Substance: ASPIRIN
     Dosage: 75 MG, QD
     Route: 065
     Dates: start: 20190522
  15. LOCOID [Concomitant]
     Active Substance: HYDROCORTISONE BUTYRATE
     Dosage: UNK (ACCORDING TO SPECIAL PRESCRIPTION:LUBRICATED 2 TIMES DAILY FOR 2 WEEKS OVER SMALL RASHES ON THE
     Route: 065
     Dates: start: 20200515
  16. SIMVASTATIN. [Concomitant]
     Active Substance: SIMVASTATIN
     Dosage: 40 MG, QD
     Route: 065
     Dates: start: 20190613

REACTIONS (1)
  - Soft tissue infection [Recovering/Resolving]

NARRATIVE: CASE EVENT DATE: 20201015
